FAERS Safety Report 15922826 (Version 1)
Quarter: 2019Q1

REPORT INFORMATION
  Report Type: Spontaneous
  Country: HR (occurrence: HR)
  Receive Date: 20190206
  Receipt Date: 20190206
  Transmission Date: 20190417
  Serious: Yes (Hospitalization)
  Sender: FDA-Public Use
  Company Number: HR-TEVA-2019-HR-1007151

PATIENT
  Age: 64 Year
  Sex: Male

DRUGS (8)
  1. TRIMETAZIDINE [Concomitant]
     Active Substance: TRIMETAZIDINE
     Indication: CORONARY ARTERY DISEASE
     Dosage: 35 MILLIGRAM DAILY; 35 MG, BID
     Route: 048
     Dates: start: 20110301
  2. CLOPIDOGREL [Suspect]
     Active Substance: CLOPIDOGREL BISULFATE
     Indication: CORONARY ARTERY DISEASE
     Dosage: 75 MILLIGRAM DAILY; 75 MG, QD
     Route: 048
     Dates: start: 20110701
  3. METOPROLOL. [Concomitant]
     Active Substance: METOPROLOL
     Indication: ANGINA PECTORIS
     Dosage: 25 MILLIGRAM DAILY; 25 MG, BID
     Route: 048
     Dates: start: 20111113
  4. CANDESARTAN. [Concomitant]
     Active Substance: CANDESARTAN
     Indication: HYPERTENSION
     Dosage: 8 MILLIGRAM DAILY; 8 MG, QD
     Route: 048
     Dates: start: 20121120
  5. FUROSEMIDE. [Concomitant]
     Active Substance: FUROSEMIDE
     Indication: CARDIAC FAILURE
     Dosage: 125 MILLIGRAM DAILY; 125 MG, BID
     Route: 048
     Dates: start: 20111113
  6. ACETYLSALICYLIC ACID [Suspect]
     Active Substance: ASPIRIN
     Indication: MYOCARDIAL INFARCTION
     Dosage: 100 MILLIGRAM DAILY; 100 MG, BID
     Route: 048
     Dates: start: 20060101
  7. RANOLAZINE. [Concomitant]
     Active Substance: RANOLAZINE
     Indication: ANGINA PECTORIS
     Dosage: 750 MILLIGRAM DAILY; 750 MG, BID
     Route: 048
     Dates: start: 20140217
  8. IVABRADINE [Concomitant]
     Active Substance: IVABRADINE
     Indication: SINUS TACHYCARDIA
     Dosage: 7.5 MILLIGRAM DAILY; 7.5 MG, BID
     Route: 048
     Dates: start: 20140205

REACTIONS (1)
  - Gastritis [Recovered/Resolved]

NARRATIVE: CASE EVENT DATE: 20140303
